FAERS Safety Report 15499110 (Version 1)
Quarter: 2018Q4

REPORT INFORMATION
  Report Type: Spontaneous
  Country: FR (occurrence: FR)
  Receive Date: 20181015
  Receipt Date: 20181015
  Transmission Date: 20190205
  Serious: Yes (Life-Threatening)
  Sender: FDA-Public Use
  Company Number: FR-PFIZER INC-2018413801

PATIENT
  Age: 20 Year
  Sex: Female
  Weight: 130 kg

DRUGS (6)
  1. LIDOCAINE AGUETTANT [Suspect]
     Active Substance: LIDOCAINE
     Indication: ANAESTHESIA
     Dosage: 100 MG, UNK
     Route: 042
     Dates: start: 20180910, end: 20180910
  2. KETAMINE RENAUDIN [Suspect]
     Active Substance: KETAMINE
     Indication: ANAESTHESIA
     Dosage: 30 MG, UNK
     Route: 042
     Dates: start: 20180910, end: 20180910
  3. SUFENTANIL RENAUDIN [Suspect]
     Active Substance: SUFENTANIL CITRATE
     Indication: ANAESTHESIA
     Dosage: 25 UG, UNK
     Route: 042
     Dates: start: 20180910, end: 20180910
  4. ATRACURIUM BESILATE [Suspect]
     Active Substance: ATRACURIUM BESYLATE
     Indication: ANAESTHESIA
     Dosage: 50 MG, UNK
     Route: 042
     Dates: start: 20180910, end: 20180910
  5. CEFAZOLINE PANPHARMA [Suspect]
     Active Substance: CEFAZOLIN SODIUM
     Indication: ANAESTHESIA
     Dosage: 4 G, UNK
     Route: 042
     Dates: start: 20180910, end: 20180910
  6. PROPOFOL PANPHARMA [Suspect]
     Active Substance: PROPOFOL
     Indication: ANAESTHESIA
     Dosage: 200 MG, UNK
     Route: 042
     Dates: start: 20180910, end: 20180910

REACTIONS (4)
  - Rash generalised [Recovered/Resolved]
  - Bronchospasm [Recovered/Resolved]
  - Oxygen saturation decreased [Recovered/Resolved]
  - Hypotension [Recovered/Resolved]

NARRATIVE: CASE EVENT DATE: 20180910
